FAERS Safety Report 22648811 (Version 1)
Quarter: 2023Q2

REPORT INFORMATION
  Report Type: Report from Study
  Country: NL (occurrence: NL)
  Receive Date: 20230628
  Receipt Date: 20230628
  Transmission Date: 20230721
  Serious: Yes (Other)
  Sender: FDA-Public Use
  Company Number: NL-JNJFOC-20230656007

PATIENT

DRUGS (1)
  1. REMICADE [Suspect]
     Active Substance: INFLIXIMAB
     Indication: Complex regional pain syndrome
     Route: 041

REACTIONS (14)
  - Erysipelas [Unknown]
  - Scleroderma [Unknown]
  - Dermatomyositis [Unknown]
  - Headache [Unknown]
  - Myalgia [Unknown]
  - Urticaria [Unknown]
  - Pruritus [Unknown]
  - Rash [Unknown]
  - Nausea [Unknown]
  - Fatigue [Unknown]
  - Alopecia [Unknown]
  - Infusion related reaction [Recovered/Resolved]
  - Therapy non-responder [Unknown]
  - Off label use [Unknown]
